FAERS Safety Report 4442834-3 (Version None)
Quarter: 2004Q3

REPORT INFORMATION
  Report Type: 
  Country: None (occurrence: None)
  Receive Date: 20040903
  Receipt Date: 20040804
  Transmission Date: 20050211
  Serious: Yes (Other)
  Sender: FDA-Public Use
  Company Number: 2004UW16518

PATIENT
  Age: 72 Year
  Sex: Female
  Weight: 79.3795 kg

DRUGS (8)
  1. CRESTOR [Suspect]
     Indication: BLOOD CHOLESTEROL INCREASED
     Dosage: 10 MG PO
     Route: 048
     Dates: start: 20040803
  2. GLUCOPHAGE [Concomitant]
  3. LOPRESSOR [Concomitant]
  4. NORVASC [Concomitant]
  5. COZAAR [Concomitant]
  6. PROTONIX [Concomitant]
  7. ISOSORBIDE [Concomitant]
  8. PLAVIX [Concomitant]

REACTIONS (2)
  - FEELING ABNORMAL [None]
  - HYPERHIDROSIS [None]
